FAERS Safety Report 8266621-3 (Version None)
Quarter: 2012Q2

REPORT INFORMATION
  Report Type: 
  Country: None (occurrence: None)
  Receive Date: 20120406
  Receipt Date: 20120321
  Transmission Date: 20120825
  Serious: Yes (Other)
  Sender: FDA-Public Use
  Company Number: DK-BAXTER-2011BH000958

PATIENT
  Sex: Female

DRUGS (43)
  1. CYCLOPHOSPHAMIDE [Suspect]
     Dosage: 03JUL2006-04SEP2006: 750 MG I.V. 25SEP2006-03OKT2006: 775 MG I.V. 1 TIMES INFUSION
     Route: 042
     Dates: start: 20060904, end: 20060904
  2. MESNA [Suspect]
     Dosage: 03JUL2006-04SEP2006: 200 MG I.V. 28SEP2006-03OKT2006: 230 MG I.V.
     Route: 042
     Dates: start: 20060925, end: 20060925
  3. MESNA [Suspect]
     Dosage: 03JUL2006-04SEP2006: 200 MG I.V. 28SEP2006-03OKT2006: 230 MG I.V.
     Route: 042
     Dates: start: 20060731, end: 20060731
  4. MESNA [Suspect]
     Dosage: 03JUL2006-04SEP2006: 200 MG I.V. 28SEP2006-03OKT2006: 230 MG I.V.
     Route: 042
     Dates: start: 20060703, end: 20060703
  5. PREDNISONE TAB [Suspect]
     Indication: HODGKIN'S DISEASE
     Dosage: 08MAJ2006-03JUL2006: 35+25+25 MG. 03JUL2006-28AUG2006:  20 MG X 3.
     Route: 048
     Dates: start: 20060508, end: 20061010
  6. VINCRISTINE SULFATE [Suspect]
     Dosage: BOLUS INJEKTION.
     Route: 042
     Dates: start: 20060605, end: 20060605
  7. VINCRISTINE SULFATE [Suspect]
     Dosage: BOLUS INJEKTION.
     Route: 042
     Dates: start: 20060515, end: 20060515
  8. DOXORUBICIN HCL [Suspect]
     Indication: HODGKIN'S DISEASE
     Route: 042
     Dates: start: 20060619, end: 20060619
  9. DOXORUBICIN HCL [Suspect]
     Route: 042
     Dates: start: 20060522, end: 20060522
  10. CYCLOPHOSPHAMIDE [Suspect]
     Dosage: 03JUL2006-04SEP2006: 750 MG I.V. 25SEP2006-03OKT2006: 775 MG I.V. 1 TIMES INFUSION
     Route: 042
     Dates: start: 20060731, end: 20060731
  11. VINCRISTINE SULFATE [Suspect]
     Dosage: BOLUS INJEKTION.
     Route: 042
     Dates: start: 20060807, end: 20060807
  12. VINCRISTINE SULFATE [Suspect]
     Dosage: BOLUS INJEKTION.
     Route: 042
     Dates: start: 20060731, end: 20060731
  13. VINCRISTINE SULFATE [Suspect]
     Dosage: BOLUS INJEKTION.
     Route: 042
     Dates: start: 20060508, end: 20060508
  14. ETOPOSIDE [Suspect]
     Route: 042
     Dates: start: 20060508, end: 20060512
  15. CYCLOPHOSPHAMIDE [Suspect]
     Dosage: 03JUL2006-04SEP2006: 750 MG I.V. 25SEP2006-03OKT2006: 775 MG I.V. 1 TIMES INFUSION
     Route: 042
     Dates: start: 20060828, end: 20060828
  16. VINCRISTINE SULFATE [Suspect]
     Dosage: BOLUS INJEKTION.
     Route: 042
     Dates: start: 20060828, end: 20060828
  17. VINCRISTINE SULFATE [Suspect]
     Dosage: BOLUS INJEKTION.
     Route: 042
     Dates: start: 20060710, end: 20060710
  18. POTASSIUM CHLORIDE [Concomitant]
     Route: 065
  19. MESNA [Suspect]
     Dosage: 03JUL2006-04SEP2006: 200 MG I.V. 28SEP2006-03OKT2006: 230 MG I.V.
     Route: 042
     Dates: start: 20060904, end: 20060904
  20. VINCRISTINE SULFATE [Suspect]
     Indication: HODGKIN'S DISEASE
     Dosage: BOLUS INJEKTION.
     Route: 042
     Dates: start: 20061003, end: 20061003
  21. VINCRISTINE SULFATE [Suspect]
     Dosage: BOLUS INJEKTION.
     Route: 042
     Dates: start: 20060911, end: 20060911
  22. VINCRISTINE SULFATE [Suspect]
     Dosage: BOLUS INJEKTION.
     Route: 042
     Dates: start: 20060619, end: 20060619
  23. VINCRISTINE SULFATE [Suspect]
     Dosage: BOLUS INJEKTION.
     Route: 042
     Dates: start: 20060612, end: 20060612
  24. VINCRISTINE SULFATE [Suspect]
     Dosage: BOLUS INJEKTION.
     Route: 042
     Dates: start: 20060522, end: 20060522
  25. CYCLOPHOSPHAMIDE [Suspect]
     Indication: HODGKIN'S DISEASE
     Dosage: 03JUL2006-04SEP2006: 750 MG I.V. 25SEP2006-03OKT2006: 775 MG I.V. 1 TIMES INFUSION
     Route: 042
     Dates: start: 20061003, end: 20061003
  26. MESNA [Suspect]
     Indication: HODGKIN'S DISEASE
     Dosage: 03JUL2006-04SEP2006: 200 MG I.V. 28SEP2006-03OKT2006: 230 MG I.V.
     Route: 042
     Dates: start: 20061003, end: 20061003
  27. PREDNISONE TAB [Suspect]
     Dosage: 20MGX3
     Route: 048
     Dates: start: 20060703, end: 20060828
  28. PROCARBAZINE HYDROCHLORIDE [Suspect]
     Indication: HODGKIN'S DISEASE
     Route: 048
     Dates: start: 20060703, end: 20061010
  29. DOXORUBICIN HCL [Suspect]
     Route: 042
     Dates: start: 20060508, end: 20060508
  30. CYCLOPHOSPHAMIDE [Suspect]
     Dosage: 03JUL2006-04SEP2006: 750 MG I.V. 25SEP2006-03OKT2006: 775 MG I.V. 1 TIMES INFUSION
     Route: 042
     Dates: start: 20060925, end: 20060925
  31. CYCLOPHOSPHAMIDE [Suspect]
     Dosage: 03JUL2006-04SEP2006: 750 MG I.V. 25SEP2006-03OKT2006: 775 MG I.V. 1 TIMES INFUSION
     Route: 042
     Dates: start: 20060710, end: 20060710
  32. CYCLOPHOSPHAMIDE [Suspect]
     Dosage: 03JUL2006-04SEP2006: 750 MG I.V. 25SEP2006-03OKT2006: 775 MG I.V. 1 TIMES INFUSION
     Route: 042
     Dates: start: 20060703, end: 20060703
  33. MESNA [Suspect]
     Dosage: 03JUL2006-04SEP2006: 200 MG I.V. 28SEP2006-03OKT2006: 230 MG I.V.
     Route: 042
     Dates: start: 20060807, end: 20060807
  34. DOXORUBICIN HCL [Suspect]
     Route: 042
     Dates: start: 20060605, end: 20060605
  35. CYCLOPHOSPHAMIDE [Suspect]
     Dosage: 03JUL2006-04SEP2006: 750 MG I.V. 25SEP2006-03OKT2006: 775 MG I.V. 1 TIMES INFUSION
     Route: 042
     Dates: start: 20060807, end: 20060807
  36. VINCRISTINE SULFATE [Suspect]
     Dosage: BOLUS INJEKTION.
     Route: 042
     Dates: start: 20060703, end: 20060703
  37. GLUCOSE ^SAD^ [Concomitant]
     Route: 051
  38. MESNA [Suspect]
     Dosage: 03JUL2006-04SEP2006: 200 MG I.V. 28SEP2006-03OKT2006: 230 MG I.V.
     Route: 042
     Dates: start: 20060828, end: 20060828
  39. MESNA [Suspect]
     Dosage: 03JUL2006-04SEP2006: 200 MG I.V. 28SEP2006-03OKT2006: 230 MG I.V.
     Route: 042
     Dates: start: 20060710, end: 20060710
  40. VINCRISTINE SULFATE [Suspect]
     Dosage: BOLUS INJEKTION.
     Route: 042
     Dates: start: 20060925, end: 20060925
  41. VINCRISTINE SULFATE [Suspect]
     Dosage: BOLUS INJEKTION.
     Route: 042
     Dates: start: 20060904, end: 20060904
  42. ETOPOSIDE [Suspect]
     Indication: HODGKIN'S DISEASE
     Route: 042
     Dates: start: 20060605, end: 20060609
  43. SODIUM FLUORIDE [Concomitant]
     Route: 065

REACTIONS (8)
  - OSTEONECROSIS [None]
  - FATIGUE [None]
  - LYMPHADENOPATHY [None]
  - INTERVERTEBRAL DISC PROTRUSION [None]
  - BACK PAIN [None]
  - ARTHRALGIA [None]
  - BONE PAIN [None]
  - PERTUSSIS [None]
